FAERS Safety Report 6623815-8 (Version None)
Quarter: 2010Q1

REPORT INFORMATION
  Report Type: 
  Country: None (occurrence: None)
  Receive Date: 20100310
  Receipt Date: 20100225
  Transmission Date: 20100710
  Serious: Yes (Other)
  Sender: FDA-Public Use
  Company Number: PHHY2010GB04915

PATIENT
  Sex: Male

DRUGS (3)
  1. CLOZARIL [Suspect]
     Indication: SCHIZOPHRENIA
     Dosage: UNK
     Dates: start: 20091019
  2. TRUVADA [Concomitant]
  3. KALETRA [Concomitant]

REACTIONS (2)
  - DRUG INEFFECTIVE [None]
  - HIV TEST POSITIVE [None]
